FAERS Safety Report 5908720-4 (Version None)
Quarter: 2008Q4

REPORT INFORMATION
  Report Type: 
  Country: None (occurrence: None)
  Receive Date: 20081006
  Receipt Date: 20080925
  Transmission Date: 20090506
  Serious: No
  Sender: FDA-Public Use
  Company Number: B0531309A

PATIENT
  Age: 55 Year
  Sex: Male

DRUGS (2)
  1. VENTOLIN [Suspect]
     Route: 055
     Dates: start: 20080131, end: 20080201
  2. NO CONCURRENT MEDICATION [Concomitant]

REACTIONS (8)
  - ASTHENIA [None]
  - CIRCULATORY COLLAPSE [None]
  - DYSPNOEA [None]
  - DYSSTASIA [None]
  - INFLUENZA LIKE ILLNESS [None]
  - LOSS OF CONSCIOUSNESS [None]
  - MALAISE [None]
  - WHEEZING [None]
